FAERS Safety Report 6683909-8 (Version None)
Quarter: 2010Q2

REPORT INFORMATION
  Report Type: 
  Country: None (occurrence: None)
  Receive Date: 20100416
  Receipt Date: 20100402
  Transmission Date: 20101027
  Serious: Yes (Hospitalization)
  Sender: FDA-Public Use
  Company Number: FR-ELI_LILLY_AND_COMPANY-FR201004001211

PATIENT
  Age: 78 Year
  Sex: Female

DRUGS (10)
  1. FORTEO [Suspect]
     Indication: OSTEOPOROSIS
     Dosage: 20 UG, DAILY (1/D)
     Dates: start: 20090228
  2. APROVEL [Concomitant]
     Indication: HYPERTENSION
  3. PRAVASTATIN [Concomitant]
  4. DILATRANE [Concomitant]
     Indication: ASTHMA
  5. SPECIAFOLDINE [Concomitant]
     Indication: RHEUMATOID ARTHRITIS
  6. SALAZOPYRINE [Concomitant]
  7. PREDNISONE [Concomitant]
     Indication: RHEUMATOID ARTHRITIS
  8. IXPRIM [Concomitant]
     Indication: PAIN
  9. CALCITE D [Concomitant]
     Indication: OSTEOPOROSIS
  10. TIMOFEROL [Concomitant]

REACTIONS (3)
  - NASAL CYST REMOVAL [None]
  - PIGMENTATION DISORDER [None]
  - SKIN GRAFT [None]
